FAERS Safety Report 14146611 (Version 1)
Quarter: 2017Q4

REPORT INFORMATION
  Report Type: Spontaneous
  Country: US (occurrence: US)
  Receive Date: 20171031
  Receipt Date: 20171031
  Transmission Date: 20180321
  Serious: No
  Sender: FDA-Public Use
  Company Number: US-BAUSCH-BL-2016-024656

PATIENT
  Age: 88 Year
  Sex: Male

DRUGS (2)
  1. PRESERVISION AREDS [Concomitant]
     Active Substance: MINERALS\VITAMINS
     Indication: MACULAR DEGENERATION
     Route: 048
  2. BEPREVE [Suspect]
     Active Substance: BEPOTASTINE BESILATE
     Indication: EYE IRRITATION
     Dosage: IN EACY EYE
     Route: 047
     Dates: start: 20161005

REACTIONS (1)
  - Headache [Not Recovered/Not Resolved]

NARRATIVE: CASE EVENT DATE: 20161006
